FAERS Safety Report 13570500 (Version 1)
Quarter: 2017Q2

REPORT INFORMATION
  Report Type: Spontaneous
  Country: JP (occurrence: JP)
  Receive Date: 20170522
  Receipt Date: 20170522
  Transmission Date: 20170830
  Serious: Yes (Hospitalization)
  Sender: FDA-Public Use
  Company Number: JP-B.I. PHARMACEUTICALS,INC./RIDGEFIELD-2017-NB-002727

PATIENT
  Age: 82 Year
  Sex: Female

DRUGS (2)
  1. PERSANTIN [Suspect]
     Active Substance: DIPYRIDAMOLE
     Indication: ANGINA PECTORIS
     Route: 048
  2. PLAVIX [Concomitant]
     Active Substance: CLOPIDOGREL BISULFATE
     Indication: PRODUCT USED FOR UNKNOWN INDICATION
     Route: 048

REACTIONS (1)
  - Spondylolisthesis [Unknown]
